FAERS Safety Report 15267937 (Version 1)
Quarter: 2018Q3

REPORT INFORMATION
  Report Type: Spontaneous
  Country: US (occurrence: US)
  Receive Date: 20180725
  Receipt Date: 20180725
  Transmission Date: 20181010
  Serious: Yes (Other)
  Sender: FDA-Public Use
  Company Number: None

PATIENT

DRUGS (2)
  1. EPI?SAFE SYRINGE (DEVICE) [Suspect]
     Active Substance: DEVICE
  2. EPI?SAFE COMBINATION KIT [Suspect]
     Active Substance: EPINEPHRINE

REACTIONS (1)
  - Off label use of device [None]

NARRATIVE: CASE EVENT DATE: 20180725
